FAERS Safety Report 9031881 (Version 1)
Quarter: 2013Q1

REPORT INFORMATION
  Report Type: Spontaneous
  Country: AU (occurrence: AU)
  Receive Date: 20130125
  Receipt Date: 20130125
  Transmission Date: 20140127
  Serious: Yes (Other)
  Sender: FDA-Public Use
  Company Number: PHHY2013AU007039

PATIENT
  Age: 71 Year
  Sex: Female

DRUGS (8)
  1. ACLASTA [Suspect]
     Indication: OSTEOPOROSIS
     Dosage: 5 MG, UNK
     Route: 042
     Dates: start: 20120117
  2. CRESTOR [Concomitant]
     Indication: HYPERCHOLESTEROLAEMIA
     Dosage: 10 MG, 1 DAILY
     Route: 048
  3. EFEXOR [Concomitant]
     Indication: DEPRESSION
     Dosage: 150 MG, 1 MANE
     Route: 048
  4. GAVISCON [Concomitant]
     Indication: GASTROOESOPHAGEAL REFLUX DISEASE
     Dosage: 500 MG-267 MG 20 ML PRN - 160/10 ML
     Route: 048
  5. METAMUCIL [Concomitant]
     Indication: DIVERTICULUM
     Dosage: 3.4 G (PER 5.8G MDU DOSE)
     Route: 048
  6. OSTELIN [Concomitant]
     Dosage: 1000 UNITS DAILY
     Route: 048
  7. PANADOL [Concomitant]
     Indication: OSTEOARTHRITIS
     Dosage: 2 DF, TID PRN
     Route: 048
  8. VALIUM [Concomitant]
     Indication: ANXIETY
     Dosage: 5 MG, 1 NOCTE PRN
     Route: 048

REACTIONS (1)
  - Neuropathy peripheral [Not Recovered/Not Resolved]
